FAERS Safety Report 7007466-1 (Version None)
Quarter: 2010Q3

REPORT INFORMATION
  Report Type: 
  Country: None (occurrence: None)
  Receive Date: 20100920
  Receipt Date: 20100903
  Transmission Date: 20110219
  Serious: Yes (Hospitalization)
  Sender: FDA-Public Use
  Company Number: ACO_01893_2010

PATIENT
  Sex: Male
  Weight: 74.8435 kg

DRUGS (6)
  1. AMPYRA [Suspect]
     Indication: GAIT DISTURBANCE
     Dosage: (10 MG BID ORAL)
     Route: 048
     Dates: start: 20100810
  2. SEPTRA [Suspect]
     Indication: CYST
     Dosage: (DF ORAL)
     Route: 048
     Dates: start: 20100814
  3. SEPTRA [Suspect]
     Indication: PHARYNGITIS
     Dosage: (DF ORAL)
     Route: 048
     Dates: start: 20100814
  4. ASPIRIN [Concomitant]
  5. VITAMIN D [Concomitant]
  6. TYSASRI [Concomitant]

REACTIONS (3)
  - MUSCLE SPASMS [None]
  - NEPHROLITHIASIS [None]
  - PHARYNGEAL CYST [None]
